FAERS Safety Report 15344227 (Version 2)
Quarter: 2018Q3

REPORT INFORMATION
  Report Type: Other
  Country: FR (occurrence: FR)
  Receive Date: 20180903
  Receipt Date: 20180903
  Transmission Date: 20181010
  Serious: Yes (Congenital Anomaly)
  Sender: FDA-Public Use
  Company Number: FR-APOTEX-2018AP019260

PATIENT
  Sex: Male

DRUGS (4)
  1. DEROXAT [Suspect]
     Active Substance: PAROXETINE HYDROCHLORIDE
     Indication: BIPOLAR DISORDER
     Dosage: UNK
     Route: 048
  2. TERALITHE [Suspect]
     Active Substance: LITHIUM CARBONATE
     Indication: BIPOLAR DISORDER
     Dosage: 250 MG, QD
     Route: 048
  3. SEROPRAM (CITALOPRAM HYDROBROMIDE) [Suspect]
     Active Substance: CITALOPRAM HYDROBROMIDE
     Indication: BIPOLAR DISORDER
     Dosage: 20 MG, QD
     Route: 048
  4. LARGACTIL                          /00011901/ [Suspect]
     Active Substance: CHLORPROMAZINE
     Indication: BIPOLAR DISORDER
     Dosage: 1/2CP
     Route: 048

REACTIONS (3)
  - Glossoptosis [Not Recovered/Not Resolved]
  - Retrognathia [Not Recovered/Not Resolved]
  - Cleft palate [Not Recovered/Not Resolved]

NARRATIVE: CASE EVENT DATE: 20180208
